FAERS Safety Report 7572033-8 (Version None)
Quarter: 2011Q2

REPORT INFORMATION
  Report Type: 
  Country: None (occurrence: None)
  Receive Date: 20110624
  Receipt Date: 20110617
  Transmission Date: 20111010
  Serious: Yes (Other)
  Sender: FDA-Public Use
  Company Number: US-US-EMD SERONO, INC.-7066261

PATIENT
  Sex: Female

DRUGS (3)
  1. REBIF [Suspect]
     Indication: PRODUCT USED FOR UNKNOWN INDICATION
     Route: 058
     Dates: start: 20110610
  2. REBIF [Suspect]
     Route: 058
     Dates: start: 20110615, end: 20110615
  3. REBIF [Suspect]
     Route: 058

REACTIONS (1)
  - PNEUMONIA [None]
